FAERS Safety Report 5419420-1 (Version None)
Quarter: 2007Q3

REPORT INFORMATION
  Report Type: 
  Country: None (occurrence: None)
  Receive Date: 20070820
  Receipt Date: 20070817
  Transmission Date: 20080115
  Serious: Yes (Hospitalization)
  Sender: FDA-Public Use
  Company Number: A0671358A

PATIENT
  Age: 5 Year
  Sex: Female
  Weight: 17 kg

DRUGS (1)
  1. CLAVULIN [Suspect]
     Indication: PNEUMONIA
     Dosage: 5ML UNKNOWN
     Route: 048
     Dates: start: 20070814, end: 20070814

REACTIONS (1)
  - PNEUMONIA [None]
